FAERS Safety Report 5005182-9 (Version None)
Quarter: 2006Q2

REPORT INFORMATION
  Report Type: 
  Country: None (occurrence: None)
  Receive Date: 20060518
  Receipt Date: 20051228
  Transmission Date: 20061013
  Serious: Yes (Life-Threatening)
  Sender: FDA-Public Use
  Company Number: 2005AC02039

PATIENT
  Age: 19595 Day
  Sex: Female
  Weight: 80 kg

DRUGS (6)
  1. MARCAINE [Suspect]
     Indication: ANAESTHESIA
     Route: 037
     Dates: start: 20051205, end: 20051205
  2. MIDAZOLAM HCL [Concomitant]
     Indication: SEDATIVE THERAPY
     Route: 042
     Dates: start: 20051205, end: 20051205
  3. VALSARTAN + HYDROCHLOROTHIAZIDE [Concomitant]
     Indication: HYPERTENSION
     Route: 048
  4. FLAVONOIDES [Concomitant]
     Route: 048
     Dates: start: 20050101
  5. FUROSEMIDE [Concomitant]
     Indication: HYPERTENSION
     Route: 048
  6. ATORVASTATIN CALCIUM [Concomitant]
     Indication: BLOOD CHOLESTEROL INCREASED
     Route: 048

REACTIONS (5)
  - ASTHENIA [None]
  - BRADYCARDIA [None]
  - HYPOTENSION [None]
  - NERVE BLOCK [None]
  - PROCEDURAL COMPLICATION [None]
